FAERS Safety Report 8352911-2 (Version None)
Quarter: 2012Q2

REPORT INFORMATION
  Report Type: 
  Country: None (occurrence: None)
  Receive Date: 20120511
  Receipt Date: 20120508
  Transmission Date: 20120825
  Serious: Yes (Death, Hospitalization, Other)
  Sender: FDA-Public Use
  Company Number: US-ASTRAZENECA-2011SE76617

PATIENT
  Age: 86 Year
  Sex: Female
  Weight: 78 kg

DRUGS (16)
  1. SYMBICORT [Suspect]
     Dosage: 80/4.5 MG, 2 PUFFS, BID
     Route: 055
     Dates: start: 20111201
  2. DIGOXIN [Concomitant]
  3. FOLIC ACID [Concomitant]
  4. COUMADIN [Concomitant]
  5. LIQUID POTASSIUM [Concomitant]
     Dosage: 1 TABLE SPOON
  6. SYMBICORT [Suspect]
     Dosage: 80/4.5 MG, 2 PUFFS, BID
     Route: 055
  7. CYMBALTA [Concomitant]
  8. BROMOCRIPTIN [Concomitant]
  9. TOPROL-XL [Suspect]
     Route: 048
  10. RITALIN [Concomitant]
  11. LISINOPRIL [Concomitant]
  12. LASIX [Concomitant]
  13. NORVASC [Concomitant]
  14. B1 VITAMIN [Concomitant]
  15. SYMBICORT [Suspect]
     Dosage: 80/4.5 MG, 2 PUFFS, BID
     Route: 055
  16. LIPITOR [Concomitant]

REACTIONS (9)
  - FALL [None]
  - BRAIN INJURY [None]
  - WRONG TECHNIQUE IN DRUG USAGE PROCESS [None]
  - CERVICAL VERTEBRAL FRACTURE [None]
  - DISABILITY [None]
  - WHEEZING [None]
  - SPEECH DISORDER [None]
  - CEREBROVASCULAR ACCIDENT [None]
  - SLEEP APNOEA SYNDROME [None]
